FAERS Safety Report 6453385-9 (Version None)
Quarter: 2009Q4

REPORT INFORMATION
  Report Type: 
  Country: None (occurrence: None)
  Receive Date: 20091124
  Receipt Date: 20091116
  Transmission Date: 20100525
  Serious: Yes (Hospitalization)
  Sender: FDA-Public Use
  Company Number: LB-ROCHE-667409

PATIENT
  Sex: Male

DRUGS (2)
  1. XELODA [Suspect]
     Dosage: FREQUENCY REPORTED: DAILY FOR 14 DAYS, FOLLOWED BY 1 WEEK REST.
     Route: 048
     Dates: start: 20091015
  2. OXALIPLATIN [Suspect]
     Route: 042

REACTIONS (3)
  - BONE MARROW FAILURE [None]
  - MUCOSAL INFLAMMATION [None]
  - THROMBOSIS [None]
